FAERS Safety Report 7283992-5 (Version None)
Quarter: 2011Q1

REPORT INFORMATION
  Report Type: 
  Country: None (occurrence: None)
  Receive Date: 20110209
  Receipt Date: 20110131
  Transmission Date: 20110831
  Serious: Yes (Death, Other)
  Sender: FDA-Public Use
  Company Number: US-PURDUE-USA-2011-0063348

PATIENT
  Age: 23 Year
  Sex: Male

DRUGS (1)
  1. OXYCONTIN [Suspect]
     Indication: DRUG ABUSE

REACTIONS (5)
  - FEELING ABNORMAL [None]
  - DEPRESSION [None]
  - DRUG ABUSE [None]
  - COMPLETED SUICIDE [None]
  - AGGRESSION [None]
